FAERS Safety Report 9231300 (Version 1)
Quarter: 2013Q2

REPORT INFORMATION
  Report Type: Report from Study
  Country: IL (occurrence: IL)
  Receive Date: 20130415
  Receipt Date: 20130415
  Transmission Date: 20140414
  Serious: Yes (Hospitalization, Other)
  Sender: FDA-Public Use
  Company Number: IL-ROXANE LABORATORIES, INC.-2008-DE-07759GD

PATIENT
  Age: 54 Year
  Sex: Male

DRUGS (12)
  1. MORPHINE [Suspect]
     Indication: PAIN
     Route: 008
  2. MORPHINE [Suspect]
     Indication: ANAESTHESIA PROCEDURE
     Dosage: PCA 2MG BOLUS W/7 MIN LOCKOUT
     Route: 042
  3. MORPHINE [Suspect]
     Dosage: 0.8 MG/BOLUS W/7 MIN LOCKOUT
     Route: 042
  4. OXYCODONE [Suspect]
     Indication: ALLODYNIA
     Dosage: 80 MG
  5. OXYCODONE [Suspect]
     Indication: PAIN
  6. OXYCODONE [Suspect]
     Dosage: 10 MG
     Route: 048
  7. ROPIVACAINE [Suspect]
     Indication: PAIN
     Dosage: 1.6 MG AT 6 ML; PLUS 2 ML BOLUS Q 15 MIN
     Route: 008
  8. FENTANYL [Suspect]
     Indication: PAIN
     Dosage: 4 MCG AT 6 ML; PLUS 2 ML BOLUS Q 15 MIN
     Route: 008
  9. BUPIVACAINE [Suspect]
     Indication: GENERAL ANAESTHESIA
     Route: 008
  10. KETAMINE [Suspect]
     Indication: PAIN
     Dosage: PCA, 5 MG/BOLUS WITH 7 MIN LOCKOUT
     Route: 042
  11. ALPHA BLOCKERS [Concomitant]
     Indication: PAIN IN EXTREMITY
  12. NSAID^S [Concomitant]
     Indication: PAIN IN EXTREMITY

REACTIONS (5)
  - Drug ineffective [Unknown]
  - Drug tolerance [Unknown]
  - Abnormal behaviour [Unknown]
  - Pyrexia [Unknown]
  - Catheter site erythema [Unknown]
